FAERS Safety Report 4910884-6 (Version None)
Quarter: 2006Q1

REPORT INFORMATION
  Report Type: 
  Country: None (occurrence: None)
  Receive Date: 20060208
  Receipt Date: 20060208
  Transmission Date: 20060701
  Serious: Yes (Hospitalization)
  Sender: FDA-Public Use
  Company Number: None

PATIENT
  Age: 63 Year
  Sex: Male
  Weight: 162.8413 kg

DRUGS (12)
  1. BUMETANIDE [Suspect]
     Dosage: 1 MG BID
  2. ISOSOSORBIDE SA 40 MG BID [Suspect]
     Dosage: 40 MG BID
  3. LISINOPRIL [Suspect]
     Dosage: 40 MG DAILY
  4. METOPROLOL 100MG BID [Suspect]
     Dosage: 100MG BID
  5. NIFEDIPINE 60 MG DAILY [Suspect]
     Dosage: 60 MG DAILY
  6. AMIODARONE HCL [Concomitant]
  7. ISOSORBIDE BINITRATE [Concomitant]
  8. METOPROLOL TARTRATE [Concomitant]
  9. NIFEDIOINE [Concomitant]
  10. POTASSIUM CHLORIDE [Concomitant]
  11. SIMVASTATIN [Concomitant]
  12. WARFARIN [Concomitant]

REACTIONS (2)
  - HYPOTENSION [None]
  - SYNCOPE [None]
